FAERS Safety Report 15906183 (Version 1)
Quarter: 2019Q1

REPORT INFORMATION
  Report Type: Spontaneous
  Country: US (occurrence: US)
  Receive Date: 20190111
  Receipt Date: 20190111
  Transmission Date: 20190417
  Serious: Yes (Other)
  Sender: FDA-Public Use
  Company Number: None

PATIENT
  Age: 32 Month
  Sex: Male
  Weight: 14.7 kg

DRUGS (5)
  1. KETOGENIC DIET [Concomitant]
     Active Substance: UNSPECIFIED INGREDIENT
  2. CLOBAZAM. [Suspect]
     Active Substance: CLOBAZAM
     Indication: EPILEPSY
     Dosage: ?          OTHER DOSE:22.5 (7.5,5,20) ;?
     Route: 048
     Dates: start: 20181119, end: 20181227
  3. CITRIC ACID - SODIUM CITRATE [Concomitant]
  4. MIRALAX [Concomitant]
     Active Substance: POLYETHYLENE GLYCOL 3350
  5. MELATONIN [Concomitant]
     Active Substance: MELATONIN

REACTIONS (1)
  - Epilepsy [None]

NARRATIVE: CASE EVENT DATE: 20181226
